FAERS Safety Report 23312303 (Version 1)
Quarter: 2023Q4

REPORT INFORMATION
  Report Type: Report from Study
  Country: US (occurrence: US)
  Receive Date: 20231219
  Receipt Date: 20231219
  Transmission Date: 20240110
  Serious: Yes (Hospitalization, Other)
  Sender: FDA-Public Use
  Company Number: US-GILEAD-2023-0655201

PATIENT
  Sex: Female

DRUGS (2)
  1. AZTREONAM LYSINE [Suspect]
     Active Substance: AZTREONAM LYSINE
     Indication: Hypoxanthine-guanine phosphoribosyl transferase deficiency
     Dosage: 75 MG, TID, INHALE 75 MG (1 VIAL) VIA ALTERA NEBULIZER 3 TIMES A DAY, ALTERNATE 28 DAYS ON, 28 DAYS
     Route: 055
  2. AZTREONAM LYSINE [Suspect]
     Active Substance: AZTREONAM LYSINE
     Indication: Cystic fibrosis

REACTIONS (1)
  - Cystic fibrosis [Unknown]
